FAERS Safety Report 13357550 (Version 1)
Quarter: 2017Q1

REPORT INFORMATION
  Report Type: Spontaneous
  Country: US (occurrence: US)
  Receive Date: 20170320
  Receipt Date: 20170320
  Transmission Date: 20170429
  Serious: No
  Sender: FDA-Public Use
  Company Number: None

PATIENT
  Age: 59 Year
  Sex: Female

DRUGS (1)
  1. SUTENT [Suspect]
     Active Substance: SUNITINIB MALATE
     Indication: RENAL CANCER
     Dosage: 37.5MG DAILY FOR 14 DAYS ON, THEN 7 DAYS OFF, BY MOUTH
     Route: 048
     Dates: start: 20170216

REACTIONS (1)
  - Insomnia [None]

NARRATIVE: CASE EVENT DATE: 20170301
